FAERS Safety Report 11087771 (Version 1)
Quarter: 2015Q2

REPORT INFORMATION
  Report Type: Spontaneous
  Country: US (occurrence: US)
  Receive Date: 20150504
  Receipt Date: 20150504
  Transmission Date: 20150821
  Serious: No
  Sender: FDA-Public Use
  Company Number: US-009507513-1504USA023548

PATIENT
  Age: 23 Year
  Sex: Female
  Weight: 112.47 kg

DRUGS (1)
  1. NEXPLANON [Suspect]
     Active Substance: ETONOGESTREL
     Indication: CONTRACEPTION
     Dosage: UNK
     Route: 059
     Dates: start: 20150401, end: 20150424

REACTIONS (3)
  - Device expulsion [Recovering/Resolving]
  - Wound infection [Recovering/Resolving]
  - Implant site vesicles [Recovering/Resolving]

NARRATIVE: CASE EVENT DATE: 201504
